FAERS Safety Report 18451949 (Version 1)
Quarter: 2020Q4

REPORT INFORMATION
  Report Type: Spontaneous
  Country: GB (occurrence: GB)
  Receive Date: 20201031
  Receipt Date: 20201031
  Transmission Date: 20210114
  Serious: Yes (Disabling, Other)
  Sender: FDA-Public Use
  Company Number: None

PATIENT
  Age: 32 Year
  Sex: Female
  Weight: 44 kg

DRUGS (3)
  1. METACLOPERAMIDE [Concomitant]
  2. PARACETAMOL [Concomitant]
     Active Substance: ACETAMINOPHEN
  3. CIPROFLOXACIN. [Suspect]
     Active Substance: CIPROFLOXACIN
     Indication: URINARY TRACT INFECTION
     Dosage: ?          QUANTITY:6 TABLET(S);?
     Route: 048
     Dates: start: 20200819, end: 20200822

REACTIONS (13)
  - Anxiety [None]
  - Limb discomfort [None]
  - Tendon pain [None]
  - Loss of personal independence in daily activities [None]
  - Gait inability [None]
  - Malaise [None]
  - Adverse drug reaction [None]
  - Muscle twitching [None]
  - Tremor [None]
  - Vision blurred [None]
  - Myalgia [None]
  - Hallucination [None]
  - Tinnitus [None]

NARRATIVE: CASE EVENT DATE: 20200822
